FAERS Safety Report 16749687 (Version 1)
Quarter: 2019Q3

REPORT INFORMATION
  Report Type: Spontaneous
  Country: US (occurrence: US)
  Receive Date: 20190828
  Receipt Date: 20190828
  Transmission Date: 20191005
  Serious: No
  Sender: FDA-Public Use
  Company Number: US-TEVA-2019-US-1098438

PATIENT
  Sex: Male
  Weight: 87 kg

DRUGS (3)
  1. PROVIGIL [Suspect]
     Active Substance: MODAFINIL
     Dosage: 200 MILLIGRAM DAILY; 7:00 AM
     Dates: start: 201907
  2. PROVIGIL [Suspect]
     Active Substance: MODAFINIL
     Indication: NARCOLEPSY
     Dosage: AT A LOWER DOSE, DOSAGE IS UNKNOWN
     Route: 065
  3. RITALIN [Concomitant]
     Active Substance: METHYLPHENIDATE HYDROCHLORIDE
     Route: 065

REACTIONS (4)
  - Fatigue [Unknown]
  - Somnolence [Unknown]
  - Drug ineffective [Unknown]
  - Product quality issue [Unknown]
